FAERS Safety Report 13917359 (Version 1)
Quarter: 2017Q3

REPORT INFORMATION
  Report Type: Spontaneous
  Country: US (occurrence: None)
  Receive Date: 20170827
  Receipt Date: 20170827
  Transmission Date: 20171127
  Serious: No
  Sender: FDA-Public Use
  Company Number: None

PATIENT
  Age: 54 Year
  Sex: Female

DRUGS (1)
  1. TASIGNA [Suspect]
     Active Substance: NILOTINIB
     Indication: CHRONIC MYELOID LEUKAEMIA
     Dosage: DOSE - 2 CAPSULES (300MG)
     Route: 048
     Dates: start: 20170104

REACTIONS (2)
  - Pruritus [None]
  - Bone pain [None]

NARRATIVE: CASE EVENT DATE: 20170803
